FAERS Safety Report 4348206-4 (Version None)
Quarter: 2004Q2

REPORT INFORMATION
  Report Type: 
  Country: None (occurrence: None)
  Receive Date: 20040422
  Receipt Date: 19961218
  Transmission Date: 20050107
  Serious: Yes (Death)
  Sender: FDA-Public Use
  Company Number: WAES 96120114

PATIENT
  Age: 2 Day
  Sex: Female

DRUGS (5)
  1. INDOCIN I.V. [Suspect]
     Indication: PATENT DUCTUS ARTERIOSUS
     Dosage: IV
     Route: 042
     Dates: start: 19960506, end: 19960506
  2. AMIKACIN SULFATE [Concomitant]
  3. CEFAZOLIN NA [Concomitant]
  4. DOPAMINE HCL [Concomitant]
  5. FUROSEMIDE [Concomitant]

REACTIONS (5)
  - ANAEMIA [None]
  - GASTROINTESTINAL HAEMORRHAGE [None]
  - HAEMORRHAGE INTRACRANIAL [None]
  - HYPOGLYCAEMIA [None]
  - INTRAVENTRICULAR HAEMORRHAGE [None]
